FAERS Safety Report 18896289 (Version 2)
Quarter: 2021Q1

REPORT INFORMATION
  Report Type: Spontaneous
  Country: US (occurrence: US)
  Receive Date: 20210216
  Receipt Date: 20210331
  Transmission Date: 20210420
  Serious: Yes (Other)
  Sender: FDA-Public Use
  Company Number: US-ASTRAZENECA-2021A049063

PATIENT
  Age: 25217 Day
  Sex: Female
  Weight: 60.8 kg

DRUGS (1)
  1. SYMBICORT [Suspect]
     Active Substance: BUDESONIDE\FORMOTEROL FUMARATE DIHYDRATE
     Indication: CHRONIC OBSTRUCTIVE PULMONARY DISEASE
     Dosage: 80/4.5 MCG TWO INHALATIONS TWICE A DAY
     Route: 055

REACTIONS (5)
  - Drug dose omission by device [Unknown]
  - Dyspnoea [Unknown]
  - Intentional device misuse [Unknown]
  - Device malfunction [Unknown]
  - Breast cancer [Unknown]

NARRATIVE: CASE EVENT DATE: 201808
